FAERS Safety Report 26097924 (Version 2)
Quarter: 2025Q4

REPORT INFORMATION
  Report Type: Spontaneous
  Country: EU (occurrence: EU)
  Receive Date: 20251127
  Receipt Date: 20251204
  Transmission Date: 20260118
  Serious: Yes (Other)
  Sender: MERCK SHARP & DOHME LLC
  Company Number: EU-009507513-2318457

PATIENT
  Age: 69 Year
  Sex: Male

DRUGS (7)
  1. SOTATERCEPT [Suspect]
     Active Substance: SOTATERCEPT
     Indication: Pulmonary arterial hypertension
     Dosage: UNK
     Dates: start: 20250403, end: 2025
  2. SOTATERCEPT [Suspect]
     Active Substance: SOTATERCEPT
     Dosage: 0.7 MG/KG, 5TH INJECTION
     Dates: start: 20250625, end: 20250625
  3. SOTATERCEPT [Suspect]
     Active Substance: SOTATERCEPT
     Dosage: UNK
     Dates: start: 20250901
  4. SOTATERCEPT [Suspect]
     Active Substance: SOTATERCEPT
  5. SELEXIPAG [Concomitant]
     Active Substance: SELEXIPAG
     Indication: Pulmonary arterial hypertension
  6. TRACLEER [Concomitant]
     Active Substance: BOSENTAN
     Indication: Pulmonary arterial hypertension
  7. ADCIRCA [Concomitant]
     Active Substance: TADALAFIL
     Indication: Pulmonary arterial hypertension

REACTIONS (3)
  - Pulmonary arterial hypertension [Unknown]
  - Iron deficiency anaemia [Recovered/Resolved]
  - Gastritis [Unknown]

NARRATIVE: CASE EVENT DATE: 20250101
